FAERS Safety Report 7268987-X (Version None)
Quarter: 2011Q1

REPORT INFORMATION
  Report Type: 
  Country: None (occurrence: None)
  Receive Date: 20110201
  Receipt Date: 20110118
  Transmission Date: 20110831
  Serious: Yes (Hospitalization, Other)
  Sender: FDA-Public Use
  Company Number: US-ELI_LILLY_AND_COMPANY-US201005005995

PATIENT
  Sex: Female
  Weight: 53.061 kg

DRUGS (8)
  1. FORTEO [Suspect]
     Dosage: 20 UG, DAILY (1/D)
  2. STROVITE [Concomitant]
     Dosage: UNK, DAILY (1/D)
  3. PERCOCET [Concomitant]
     Indication: PAIN
  4. FORTEO [Suspect]
     Indication: OSTEOPENIA
     Dosage: 20 UG, DAILY (1/D)
     Route: 065
     Dates: start: 20100520
  5. ASCORBIC ACID [Concomitant]
     Dosage: 1000 MG, UNK
  6. COENZYME Q10 [Concomitant]
  7. KETOPROFEN [Concomitant]
     Dosage: UNK, UNKNOWN
     Route: 065
  8. VITAMIN E [Concomitant]

REACTIONS (16)
  - PAIN IN EXTREMITY [None]
  - INTERVERTEBRAL DISC PROTRUSION [None]
  - FOOT FRACTURE [None]
  - INJECTION SITE PAIN [None]
  - HEADACHE [None]
  - NAUSEA [None]
  - DIZZINESS [None]
  - HYPOVITAMINOSIS [None]
  - ASTHENIA [None]
  - SENSORY LOSS [None]
  - COMPRESSION FRACTURE [None]
  - ANAEMIA VITAMIN B12 DEFICIENCY [None]
  - OSTEOPENIA [None]
  - NERVE COMPRESSION [None]
  - OFF LABEL USE [None]
  - MUSCLE SPASMS [None]
